FAERS Safety Report 14937255 (Version 4)
Quarter: 2018Q3

REPORT INFORMATION
  Report Type: Report from Study
  Country: US (occurrence: US)
  Receive Date: 20180525
  Receipt Date: 20180706
  Transmission Date: 20181010
  Serious: Yes (Hospitalization, Other)
  Sender: FDA-Public Use
  Company Number: US-AMGEN-USASL2018069554

PATIENT
  Age: 74 Year
  Sex: Female

DRUGS (5)
  1. ARAVA [Concomitant]
     Active Substance: LEFLUNOMIDE
     Dosage: UNK
  2. ENBREL [Suspect]
     Active Substance: ETANERCEPT
     Indication: RHEUMATOID ARTHRITIS
     Dosage: 50 MG, QWK
     Route: 065
  3. OMEPRAZOLE. [Suspect]
     Active Substance: OMEPRAZOLE
     Indication: ABDOMINAL PAIN UPPER
     Dosage: UNK
     Route: 065
     Dates: start: 201806
  4. COUMADIN [Concomitant]
     Active Substance: WARFARIN SODIUM
     Dosage: UNK (1.3)
  5. PREDNISONE. [Concomitant]
     Active Substance: PREDNISONE
     Dosage: UNK

REACTIONS (16)
  - Unevaluable event [Unknown]
  - Wound [Recovered/Resolved]
  - Implantable defibrillator insertion [Unknown]
  - Anxiety [Not Recovered/Not Resolved]
  - Road traffic accident [Unknown]
  - Dysgraphia [Unknown]
  - Increased tendency to bruise [Unknown]
  - Abdominal pain upper [Not Recovered/Not Resolved]
  - Cardiac failure congestive [Recovered/Resolved]
  - Musculoskeletal disorder [Unknown]
  - Gastrooesophageal reflux disease [Not Recovered/Not Resolved]
  - Drug effect decreased [Unknown]
  - Joint swelling [Not Recovered/Not Resolved]
  - Localised infection [Unknown]
  - Tremor [Unknown]
  - Fatigue [Not Recovered/Not Resolved]

NARRATIVE: CASE EVENT DATE: 201801
